FAERS Safety Report 12627495 (Version 1)
Quarter: 2016Q3

REPORT INFORMATION
  Report Type: Spontaneous
  Country: FR (occurrence: FR)
  Receive Date: 20160805
  Receipt Date: 20160805
  Transmission Date: 20161109
  Serious: Yes (Other)
  Sender: FDA-Public Use
  Company Number: FR-ASTRAZENECA-2016SE82734

PATIENT
  Age: 21948 Day
  Sex: Female

DRUGS (4)
  1. OMEPRAZOLE MYLAN [Suspect]
     Active Substance: OMEPRAZOLE
     Route: 042
     Dates: start: 20160523, end: 20160530
  2. LASILIX SPECIAL [Suspect]
     Active Substance: FUROSEMIDE
     Route: 042
     Dates: start: 20160531, end: 20160606
  3. INEXIUM [Suspect]
     Active Substance: ESOMEPRAZOLE
     Route: 048
     Dates: start: 20160601, end: 20160610
  4. PIPERACILLIN, TAZOBACTAM [Suspect]
     Active Substance: PIPERACILLIN SODIUM\TAZOBACTAM SODIUM
     Indication: LUNG DISORDER
     Route: 042
     Dates: start: 20160525, end: 20160606

REACTIONS (3)
  - Renal tubular necrosis [Unknown]
  - Dermatitis bullous [Recovered/Resolved]
  - Toxic skin eruption [Unknown]

NARRATIVE: CASE EVENT DATE: 20160605
